FAERS Safety Report 6504606-5 (Version None)
Quarter: 2009Q4

REPORT INFORMATION
  Report Type: 
  Country: None (occurrence: None)
  Receive Date: 20091215
  Receipt Date: 20091204
  Transmission Date: 20100525
  Serious: Yes (Hospitalization, Other)
  Sender: FDA-Public Use
  Company Number: 2009AC000483

PATIENT
  Age: 68 Year
  Sex: Male

DRUGS (22)
  1. DIGOXIN [Suspect]
     Dosage: PO
     Route: 048
  2. DORZOLAMIDE [Concomitant]
  3. ATORVASTATIN CALCIUM [Concomitant]
  4. ALPRAZOLAM [Concomitant]
  5. CARVEDILOL [Concomitant]
  6. TAMSULOSIN HCL [Concomitant]
  7. FUROSEMIDE [Concomitant]
  8. ASPIRIN [Concomitant]
  9. WARFARIN SODIUM [Concomitant]
  10. CALCIUM [Concomitant]
  11. BUPROPION HCL [Concomitant]
  12. METFORMIN [Concomitant]
  13. PRILOSEC [Concomitant]
  14. SANCTURA [Concomitant]
  15. LOTREL [Concomitant]
  16. SPIRONOLACTONE [Concomitant]
  17. BYETTA [Concomitant]
  18. ANDROGEL [Concomitant]
  19. CIPROFLOXACIN [Concomitant]
  20. CLINDAMYCIN [Concomitant]
  21. MULTI-VITAMIN [Concomitant]
  22. LORATADINE [Concomitant]

REACTIONS (2)
  - ATRIOVENTRICULAR BLOCK COMPLETE [None]
  - CARDIOMYOPATHY [None]
